FAERS Safety Report 8210636-8 (Version None)
Quarter: 2012Q1

REPORT INFORMATION
  Report Type: 
  Country: None (occurrence: None)
  Receive Date: 20120314
  Receipt Date: 20120312
  Transmission Date: 20120608
  Serious: Yes (Hospitalization, Other)
  Sender: FDA-Public Use
  Company Number: ES-MERCK-1203ESP00014

PATIENT
  Age: 47 Year
  Sex: Female

DRUGS (5)
  1. VALPROIC ACID [Suspect]
     Indication: CONVULSION
     Route: 042
     Dates: start: 20120210, end: 20120221
  2. OMEPRAZOLE [Concomitant]
     Route: 042
     Dates: start: 20120210
  3. INVANZ [Suspect]
     Indication: RESPIRATORY TRACT INFECTION
     Route: 042
     Dates: start: 20120210, end: 20120218
  4. ENOXAPARIN SODIUM [Concomitant]
     Route: 058
     Dates: start: 20120210
  5. ACETAMINOPHEN [Concomitant]
     Route: 042
     Dates: start: 20120210

REACTIONS (3)
  - DRUG INTERACTION [None]
  - THERAPEUTIC RESPONSE DECREASED [None]
  - TONIC CONVULSION [None]
